FAERS Safety Report 6083382-7 (Version None)
Quarter: 2009Q1

REPORT INFORMATION
  Report Type: 
  Country: None (occurrence: None)
  Receive Date: 20090213
  Receipt Date: 20090213
  Transmission Date: 20090719
  Serious: Yes (Hospitalization)
  Sender: FDA-Public Use
  Company Number: None

PATIENT
  Sex: Male
  Weight: 72 kg

DRUGS (3)
  1. NAFCILLIN SODIUM [Suspect]
     Indication: INFECTION
     Dosage: 2 GRAMS Q 4 HOURS IV, 9 DOSES
     Route: 042
  2. IBUPROFEN TABLETS [Suspect]
     Indication: INFLAMMATION
     Dosage: 600 MG Q 8 HOURS PO, 7 DOSES
     Route: 048
  3. PNEUMOVAX 23 [Suspect]

REACTIONS (3)
  - INJECTION SITE REACTION [None]
  - RENAL FAILURE ACUTE [None]
  - URINARY RETENTION [None]
